FAERS Safety Report 5296096-8 (Version None)
Quarter: 2007Q2

REPORT INFORMATION
  Report Type: 
  Country: None (occurrence: None)
  Receive Date: 20070406
  Receipt Date: 20070322
  Transmission Date: 20071010
  Serious: Yes (Hospitalization)
  Sender: FDA-Public Use
  Company Number: GXKR2007NL02985

PATIENT
  Age: 61 Year
  Sex: Female
  Weight: 80 kg

DRUGS (6)
  1. METOPROLOL TARTRATE [Suspect]
     Dosage: 100 MG, UNK, ORAL
     Route: 048
     Dates: start: 20070221, end: 20070312
  2. ENALAPRIL MALEATE [Concomitant]
  3. HYDROCHLOROTHIAZIDE [Concomitant]
  4. RABEPRAZOLE SODIUM [Concomitant]
  5. QUESTRAN [Concomitant]
  6. BETAHISTINE (BETAHISTINE) TABLET [Concomitant]

REACTIONS (4)
  - COUGH [None]
  - DIZZINESS [None]
  - HEADACHE [None]
  - NAUSEA [None]
